FAERS Safety Report 7181693-5 (Version None)
Quarter: 2010Q4

REPORT INFORMATION
  Report Type: 
  Country: None (occurrence: None)
  Receive Date: 20101221
  Receipt Date: 20100428
  Transmission Date: 20110411
  Serious: Yes (Hospitalization, Other)
  Sender: FDA-Public Use
  Company Number: US-AMGEN-QUU405957

PATIENT

DRUGS (6)
  1. ENBREL [Suspect]
     Indication: PSORIASIS
     Dosage: 50 MG, QWK
     Route: 058
     Dates: start: 20090415, end: 20100324
  2. LEVOTHYROXINE SODIUM [Concomitant]
  3. EFALIZUMAB [Concomitant]
     Dosage: UNK UNK, UNK
     Dates: start: 20070101, end: 20090101
  4. ACITRETIN [Concomitant]
     Dosage: UNK UNK, UNK
     Dates: start: 20050101, end: 20050101
  5. HYDROCODONE BITARTRATE [Concomitant]
  6. LORAZEPAM [Concomitant]

REACTIONS (1)
  - BREAST CANCER [None]
